FAERS Safety Report 23824497 (Version 3)
Quarter: 2024Q2

REPORT INFORMATION
  Report Type: Report from Study
  Country: DE (occurrence: DE)
  Receive Date: 20240507
  Receipt Date: 20240604
  Transmission Date: 20240716
  Serious: Yes (Hospitalization)
  Sender: FDA-Public Use
  Company Number: DE-Merck Healthcare KGaA-2024024508

PATIENT
  Age: 64 Year
  Sex: Male

DRUGS (6)
  1. AVELUMAB [Suspect]
     Active Substance: AVELUMAB
     Indication: Transitional cell carcinoma
     Dates: start: 20240304
  2. AVELUMAB [Suspect]
     Active Substance: AVELUMAB
     Dates: start: 20240318
  3. AVELUMAB [Suspect]
     Active Substance: AVELUMAB
     Dates: start: 20240402
  4. AVELUMAB [Suspect]
     Active Substance: AVELUMAB
     Dates: start: 20240415
  5. AVELUMAB [Suspect]
     Active Substance: AVELUMAB
     Dates: start: 20240429
  6. RAMIPRIL [Concomitant]
     Active Substance: RAMIPRIL
     Indication: Hypertension
     Route: 048
     Dates: start: 20200101

REACTIONS (1)
  - Priapism [Recovered/Resolved]

NARRATIVE: CASE EVENT DATE: 20240429
